FAERS Safety Report 7582298-4 (Version None)
Quarter: 2011Q2

REPORT INFORMATION
  Report Type: 
  Country: None (occurrence: None)
  Receive Date: 20110630
  Receipt Date: 20110615
  Transmission Date: 20111010
  Serious: Yes (Hospitalization, Other)
  Sender: FDA-Public Use
  Company Number: US-BAYER-201021260NA

PATIENT
  Age: 29 Year
  Sex: Female
  Weight: 61 kg

DRUGS (2)
  1. YAZ [Suspect]
     Indication: PREMENSTRUAL SYNDROME
     Dosage: UNK
     Route: 048
     Dates: start: 20070121, end: 20080407
  2. YAZ [Suspect]
     Indication: MENORRHAGIA

REACTIONS (12)
  - WEIGHT INCREASED [None]
  - GAIT DISTURBANCE [None]
  - DYSPHEMIA [None]
  - ACTIVITIES OF DAILY LIVING IMPAIRED [None]
  - CEREBROVASCULAR ACCIDENT [None]
  - NECK PAIN [None]
  - VISUAL IMPAIRMENT [None]
  - FEAR OF DISEASE [None]
  - TENSION HEADACHE [None]
  - BACK PAIN [None]
  - BALANCE DISORDER [None]
  - FEAR OF DEATH [None]
